FAERS Safety Report 26058466 (Version 1)
Quarter: 2025Q4

REPORT INFORMATION
  Report Type: Spontaneous
  Country: EU (occurrence: EU)
  Receive Date: 20251118
  Receipt Date: 20251118
  Transmission Date: 20260118
  Serious: Yes (Death, Other)
  Sender: RANBAXY
  Company Number: EU-EMA-DD-20250729-7482679-105306

PATIENT
  Age: 71 Year
  Sex: Male

DRUGS (6)
  1. OXALIPLATIN [Suspect]
     Active Substance: OXALIPLATIN
     Indication: Colon cancer
     Dosage: 130 MILLIGRAM/SQ. METER, Q3W
     Route: 065
  2. CAPECITABINE [Suspect]
     Active Substance: CAPECITABINE
     Indication: Colon cancer
     Dosage: A DOSE REDUCTION OF THE CAPECITABINE PASSED TO 75% AFTER THE THIRD COURSE AND 50% AFTER THE FOURTH
     Route: 065
  3. CAPECITABINE [Suspect]
     Active Substance: CAPECITABINE
     Indication: Lung neoplasm malignant
     Dosage: 1000 MILLIGRAM/SQ. METER
     Route: 065
  4. CERITINIB [Suspect]
     Active Substance: CERITINIB
     Indication: Non-small cell lung cancer stage IV
     Dosage: 600 MILLIGRAM, QD (80% OF THE NORMAL DOSAGE)
     Route: 065
  5. IRINOTECAN [Concomitant]
     Active Substance: IRINOTECAN
     Indication: Colon cancer stage III
     Dosage: UNK
     Route: 065
  6. Carboplatin;Pemetrexed [Concomitant]
     Indication: Colon cancer stage III
     Dosage: UNK
     Route: 065

REACTIONS (8)
  - Hand-foot-genital syndrome [Fatal]
  - Metastases to liver [Unknown]
  - Diarrhoea [Unknown]
  - Malignant neoplasm progression [Unknown]
  - Non-small cell lung cancer metastatic [Unknown]
  - Nausea [Unknown]
  - Metastases to adrenals [Unknown]
  - Colon cancer metastatic [Unknown]
